FAERS Safety Report 23080593 (Version 3)
Quarter: 2023Q4

REPORT INFORMATION
  Report Type: Spontaneous
  Country: US (occurrence: US)
  Receive Date: 20231018
  Receipt Date: 20231222
  Transmission Date: 20240109
  Serious: Yes (Hospitalization, Other)
  Sender: FDA-Public Use
  Company Number: US-PFIZER INC-PV202300170956

PATIENT
  Age: 74 Year
  Sex: Female
  Weight: 65.76 kg

DRUGS (2)
  1. TIKOSYN [Suspect]
     Active Substance: DOFETILIDE
     Indication: Heart rate increased
     Dosage: 250 MG, 2X/DAY
     Dates: start: 20230921
  2. METOPROLOL [Concomitant]
     Active Substance: METOPROLOL
     Dosage: UNK
     Dates: start: 2021

REACTIONS (5)
  - Heart rate irregular [Unknown]
  - Fall [Unknown]
  - Hip fracture [Unknown]
  - Off label use [Unknown]
  - Product prescribing error [Unknown]

NARRATIVE: CASE EVENT DATE: 20230101
